FAERS Safety Report 5052611-0 (Version None)
Quarter: 2006Q3

REPORT INFORMATION
  Report Type: 
  Country: None (occurrence: None)
  Receive Date: 20060717
  Receipt Date: 20060711
  Transmission Date: 20061208
  Serious: Yes (Life-Threatening)
  Sender: FDA-Public Use
  Company Number: RU-GLAXOSMITHKLINE-B0431061A

PATIENT
  Age: 67 Year
  Sex: Female
  Weight: 99 kg

DRUGS (5)
  1. SERETIDE [Suspect]
     Indication: ASTHMA
     Route: 055
     Dates: start: 20060101, end: 20060704
  2. ARIFON [Concomitant]
     Indication: CARDIAC FAILURE CHRONIC
     Dosage: 1.5MG PER DAY
     Dates: start: 20010101
  3. OXYGEN THERAPY [Concomitant]
     Indication: RESPIRATORY FAILURE
     Route: 055
     Dates: start: 19980101
  4. SEREVENT [Concomitant]
     Route: 055
     Dates: end: 20060501
  5. VERAPAMIL [Concomitant]
     Indication: HYPERTENSION
     Dosage: 80MG PER DAY
     Dates: start: 20010101

REACTIONS (4)
  - BLOOD PRESSURE INCREASED [None]
  - EATON-LAMBERT SYNDROME [None]
  - FALL [None]
  - TACHYARRHYTHMIA [None]
